FAERS Safety Report 8851428 (Version 2)
Quarter: 2013Q2

REPORT INFORMATION
  Report Type: Report from Study
  Country: JP (occurrence: JP)
  Receive Date: 20121021
  Receipt Date: 20130410
  Transmission Date: 20140414
  Serious: Yes (Other)
  Sender: FDA-Public Use
  Company Number: JP-009507513-1210JPN005148

PATIENT
  Age: 52 Year
  Sex: Male
  Weight: 80 kg

DRUGS (14)
  1. PEGINTRON [Suspect]
     Indication: CHRONIC HEPATITIS C
     Dosage: 1.25 MICROGRAM PER KILOGRAM, UNK
     Route: 058
     Dates: start: 20120702, end: 20120717
  2. PEGINTRON [Suspect]
     Dosage: 1.0 MICROGRAM PER KILOGRAM, UNK
     Route: 058
     Dates: start: 20120723, end: 20120918
  3. PEGINTRON [Suspect]
     Dosage: 0.8 UNK, UNK
     Route: 058
     Dates: start: 20120924
  4. REBETOL [Suspect]
     Indication: CHRONIC HEPATITIS C
     Dosage: 800 MG, UNK
     Route: 048
     Dates: start: 20120702, end: 20120712
  5. REBETOL [Suspect]
     Dosage: 600 MG, UNK
     Route: 048
     Dates: start: 20120713, end: 20120910
  6. REBETOL [Suspect]
     Dosage: 400 MG, UNK
     Route: 048
     Dates: start: 20120911
  7. TELAVIC [Suspect]
     Indication: CHRONIC HEPATITIS C
     Dosage: 1500 MG, QD
     Route: 048
     Dates: start: 20120702, end: 20120819
  8. TELAVIC [Suspect]
     Dosage: 1250 MG, QD
     Route: 048
     Dates: start: 20120820, end: 20120924
  9. PROHEPARUM [Concomitant]
     Indication: CHRONIC HEPATITIS C
     Dosage: 3 DF, UNK
     Route: 048
     Dates: end: 20120730
  10. URSO [Concomitant]
     Indication: CHRONIC HEPATITIS C
     Dosage: 600 MG, UNK
     Route: 048
  11. TAKEPRON [Concomitant]
     Indication: GASTRIC ULCER
     Dosage: 30 MG, UNK
     Route: 048
     Dates: end: 20120820
  12. OLMETEC [Concomitant]
     Indication: HYPERTENSION
     Dosage: 20 MG, UNK
     Route: 048
  13. NORVASC OD [Concomitant]
     Indication: HYPERTENSION
     Dosage: 2.5 MG, UNK
     Route: 048
  14. GASTER D [Concomitant]
     Indication: GASTRIC ULCER
     Dosage: 40 MG, QD
     Route: 048
     Dates: start: 20120821

REACTIONS (4)
  - Renal disorder [Recovered/Resolved]
  - Hyperuricaemia [Not Recovered/Not Resolved]
  - White blood cell count decreased [Not Recovered/Not Resolved]
  - Anaemia [Not Recovered/Not Resolved]
